FAERS Safety Report 6177326-7 (Version None)
Quarter: 2009Q2

REPORT INFORMATION
  Report Type: 
  Country: None (occurrence: None)
  Receive Date: 20090504
  Receipt Date: 20090424
  Transmission Date: 20091009
  Serious: Yes (Hospitalization, Other)
  Sender: FDA-Public Use
  Company Number: US-BIOGENIDEC-2009BI011437

PATIENT
  Age: 35 Year
  Sex: Male

DRUGS (4)
  1. AVONEX [Suspect]
     Indication: MULTIPLE SCLEROSIS
     Route: 030
     Dates: start: 20020529, end: 20030101
  2. AVONEX [Suspect]
     Route: 030
     Dates: start: 20030101, end: 20080128
  3. AVONEX [Suspect]
     Route: 030
     Dates: start: 20080302, end: 20080429
  4. AVONEX [Suspect]
     Route: 030
     Dates: start: 20080909

REACTIONS (8)
  - ABASIA [None]
  - ASTHENIA [None]
  - FALL [None]
  - FOOD POISONING [None]
  - HEART RATE INCREASED [None]
  - HYPERTENSION [None]
  - INFECTED CYST [None]
  - JOINT INJURY [None]
